FAERS Safety Report 6442328-X (Version None)
Quarter: 2009Q4

REPORT INFORMATION
  Report Type: 
  Country: None (occurrence: None)
  Receive Date: 20091112
  Receipt Date: 20091027
  Transmission Date: 20100525
  Serious: Yes (Death)
  Sender: FDA-Public Use
  Company Number: DE-1171348

PATIENT
  Age: 90 Year
  Sex: Female

DRUGS (1)
  1. FLUORESCITE [Suspect]
     Indication: ANGIOGRAM
     Dosage: INTRAVENOUS BLOUS
     Route: 040
     Dates: start: 20091021, end: 20091021

REACTIONS (8)
  - ACUTE LEFT VENTRICULAR FAILURE [None]
  - ACUTE PULMONARY OEDEMA [None]
  - BLOOD PRESSURE DECREASED [None]
  - CARDIOVASCULAR DISORDER [None]
  - GENERAL PHYSICAL HEALTH DETERIORATION [None]
  - HYPOTONIA [None]
  - NAUSEA [None]
  - PULMONARY CONGESTION [None]
